FAERS Safety Report 9463657 (Version 1)
Quarter: 2013Q3

REPORT INFORMATION
  Report Type: Spontaneous
  Country: US (occurrence: US)
  Receive Date: 20130819
  Receipt Date: 20130819
  Transmission Date: 20140515
  Serious: Yes (Other)
  Sender: FDA-Public Use
  Company Number: PHEH2013US017201

PATIENT
  Sex: Female

DRUGS (6)
  1. DIOVAN [Suspect]
     Dosage: 80 MG, QD
  2. MULTI-VIT [Concomitant]
  3. VITAMIN D [Concomitant]
     Dosage: UNK UKN, UNK
  4. CALCIUM [Concomitant]
     Dosage: 1200 MG, BID
  5. FISH OIL [Concomitant]
     Dosage: UNK UKN, UNK
  6. ASPIRIN [Concomitant]
     Dosage: 81 MG, UNK

REACTIONS (8)
  - Balance disorder [Unknown]
  - Blindness unilateral [Unknown]
  - Eye disorder [Unknown]
  - Mood swings [Unknown]
  - Feeling abnormal [Unknown]
  - Dizziness [Unknown]
  - Blood pressure decreased [Unknown]
  - Fatigue [Unknown]
